FAERS Safety Report 7128265-6 (Version None)
Quarter: 2010Q4

REPORT INFORMATION
  Report Type: 
  Country: None (occurrence: None)
  Receive Date: 20101130
  Receipt Date: 20101122
  Transmission Date: 20110411
  Serious: Yes (Other)
  Sender: FDA-Public Use
  Company Number: FR-SANOFI-AVENTIS-2010SA070829

PATIENT
  Age: 38 Year
  Sex: Female

DRUGS (3)
  1. TAXOTERE [Suspect]
  2. TAXOTERE [Suspect]
  3. TAXOTERE [Suspect]
     Dates: start: 20101109

REACTIONS (4)
  - ARTHRALGIA [None]
  - MENINGEAL DISORDER [None]
  - NASOPHARYNGITIS [None]
  - PYREXIA [None]
